FAERS Safety Report 9000941 (Version 1)
Quarter: 2012Q4

REPORT INFORMATION
  Report Type: Spontaneous
  Country: US (occurrence: None)
  Receive Date: 20121226
  Receipt Date: 20121226
  Transmission Date: 20130627
  Serious: Yes (Other)
  Sender: FDA-Public Use
  Company Number: 2012AP004292

PATIENT
  Age: 45 Year
  Sex: Female
  Weight: 63.5 kg

DRUGS (3)
  1. ATORVASTATIN [Suspect]
     Indication: HIGH CHOLESTEROL
     Route: 048
     Dates: start: 2012
  2. OMEPRAZOLE [Concomitant]
  3. SIMVASTATIN [Concomitant]

REACTIONS (4)
  - Metrorrhagia [None]
  - Abdominal discomfort [None]
  - Abdominal discomfort [None]
  - Haematochezia [None]
